FAERS Safety Report 8854108 (Version 1)
Quarter: 2012Q4

REPORT INFORMATION
  Report Type: 
  Country: AT (occurrence: AT)
  Receive Date: 20121022
  Receipt Date: 20121022
  Transmission Date: 20130627
  Serious: Yes (Other)
  Sender: FDA-Public Use
  Company Number: AT-JNJFOC-20121008598

PATIENT
  Sex: Female

DRUGS (1)
  1. NICORETTE FRESHMINT 2MG GUM [Suspect]
     Indication: PRODUCT USED FOR UNKNOWN INDICATION
     Dosage: 2 mg gum, 7-10 gums a day, 14-20 mg per day
     Route: 002
     Dates: start: 2007

REACTIONS (4)
  - Nicotine dependence [Not Recovered/Not Resolved]
  - Intentional drug misuse [Unknown]
  - Intraocular pressure increased [Not Recovered/Not Resolved]
  - Unwanted awareness during anaesthesia [Not Recovered/Not Resolved]
